FAERS Safety Report 18986841 (Version 1)
Quarter: 2021Q1

REPORT INFORMATION
  Report Type: Spontaneous
  Country: US (occurrence: US)
  Receive Date: 20210309
  Receipt Date: 20210309
  Transmission Date: 20210420
  Serious: No
  Sender: FDA-Public Use
  Company Number: None

PATIENT
  Age: 69 Year
  Sex: Male
  Weight: 83.25 kg

DRUGS (7)
  1. TRAZODONE HCL [Suspect]
     Active Substance: TRAZODONE HYDROCHLORIDE
     Indication: INSOMNIA
     Dosage: ?          QUANTITY:1 TABLET(S);?
     Route: 048
     Dates: start: 20210308, end: 20210309
  2. METFORMIN 500 [Concomitant]
     Active Substance: METFORMIN HYDROCHLORIDE
  3. FOSAMAX [Concomitant]
     Active Substance: ALENDRONATE SODIUM
  4. ATORVASTATIN CALCIUM 20MG [Concomitant]
     Active Substance: ATORVASTATIN CALCIUM
  5. ALTRATE 600MG [Concomitant]
  6. GENERIC PRILOSEC 20MG [Concomitant]
  7. MULTIVITAMIN [Concomitant]
     Active Substance: VITAMINS

REACTIONS (4)
  - Abnormal dreams [None]
  - Confusional state [None]
  - Headache [None]
  - Nightmare [None]

NARRATIVE: CASE EVENT DATE: 20210308
